FAERS Safety Report 9261401 (Version 1)
Quarter: 2013Q2

REPORT INFORMATION
  Report Type: Spontaneous
  Country: FR (occurrence: FR)
  Receive Date: 20130429
  Receipt Date: 20130429
  Transmission Date: 20140414
  Serious: Yes (Hospitalization)
  Sender: FDA-Public Use
  Company Number: FR-BRISTOL-MYERS SQUIBB COMPANY-18816652

PATIENT
  Age: 93 Year
  Sex: Female

DRUGS (9)
  1. APROVEL TABS 75 MG [Suspect]
     Indication: HYPERTENSION
     Route: 048
     Dates: start: 20120507
  2. LASILIX FAIBLE [Suspect]
     Indication: HYPERTENSION
     Dosage: 1DF=HALF TAB?FORMULATION-LASILIX FAIBLE 20MG (FUROSEMIDE) 1/2 TAB/D.
     Route: 048
     Dates: start: 20120507
  3. LEVOTHYROX [Concomitant]
     Dosage: TAB
     Route: 048
  4. PREVISCAN [Concomitant]
     Dosage: 1DF= HALF TAB?PREVISCAN 20MG TAB
  5. TRANSIPEG [Concomitant]
  6. DISCOTRINE [Concomitant]
     Dosage: FORMULATION-DISCOTRINE 10 MG/24 H?1DF=1 PATCH
     Route: 062
  7. DUROGESIC [Concomitant]
     Dosage: FORMULATION- DUROGESIC 25MICRO G/H 1 PATCH/3 DAYS.
     Route: 062
  8. HEMIGOXINE NATIVELLE [Concomitant]
     Route: 048
     Dates: end: 20120507
  9. LANTUS [Concomitant]
     Route: 058
     Dates: end: 20120507

REACTIONS (5)
  - Diarrhoea [Recovered/Resolved]
  - Hypernatraemia [Recovered/Resolved]
  - Dehydration [Recovered/Resolved]
  - Hypovolaemia [Recovered/Resolved]
  - Renal failure acute [Recovered/Resolved]
